FAERS Safety Report 8875423 (Version 2)
Quarter: 2012Q4

REPORT INFORMATION
  Report Type: 
  Country: BR (occurrence: BR)
  Receive Date: 20121030
  Receipt Date: 20121203
  Transmission Date: 20130627
  Serious: Yes (Hospitalization)
  Sender: FDA-Public Use
  Company Number: BR-MERCK-1210BRA013906

PATIENT
  Sex: Female

DRUGS (3)
  1. VICTRELIS [Suspect]
     Indication: HEPATITIS C
     Dosage: UNK, tid
     Route: 048
     Dates: start: 20120831, end: 201209
  2. PEG-INTRON [Suspect]
     Indication: HEPATITIS C
     Dosage: UNK
     Route: 058
     Dates: start: 20120831, end: 201209
  3. RIBAVIRIN [Suspect]
     Indication: HEPATITIS C
     Dosage: UNK, bid
     Route: 048
     Dates: start: 20120831, end: 201209

REACTIONS (6)
  - Hospitalisation [Unknown]
  - Drug ineffective [Unknown]
  - Skin reaction [Unknown]
  - Alopecia [Not Recovered/Not Resolved]
  - Gingival pain [Not Recovered/Not Resolved]
  - Disturbance in attention [Not Recovered/Not Resolved]
